FAERS Safety Report 6991677-5 (Version None)
Quarter: 2010Q3

REPORT INFORMATION
  Report Type: 
  Country: None (occurrence: None)
  Receive Date: 20100917
  Receipt Date: 20100903
  Transmission Date: 20110219
  Serious: Yes (Hospitalization, Other)
  Sender: FDA-Public Use
  Company Number: PHHY2009US55263

PATIENT
  Sex: Female

DRUGS (5)
  1. RECLAST [Suspect]
     Dosage: 5 MG, UNK
     Route: 042
     Dates: start: 20090101
  2. MOBIC [Concomitant]
     Dosage: 15 MG
  3. ULTRACET [Concomitant]
  4. VITAMIN D [Concomitant]
     Dosage: 5000 IU, ONCE A WEEK
  5. STEROIDS [Concomitant]
     Indication: PAIN

REACTIONS (11)
  - ABDOMINAL DISCOMFORT [None]
  - ARTHRALGIA [None]
  - GAIT DISTURBANCE [None]
  - GLOSSODYNIA [None]
  - INFLUENZA LIKE ILLNESS [None]
  - MIDDLE INSOMNIA [None]
  - MUSCLE SPASMS [None]
  - OEDEMA PERIPHERAL [None]
  - PAIN [None]
  - RHEUMATOID ARTHRITIS [None]
  - SWOLLEN TONGUE [None]
